FAERS Safety Report 5393868-6 (Version None)
Quarter: 2007Q3

REPORT INFORMATION
  Report Type: 
  Country: None (occurrence: None)
  Receive Date: 20070723
  Receipt Date: 20070713
  Transmission Date: 20080115
  Serious: Yes (Hospitalization)
  Sender: FDA-Public Use
  Company Number: B0479157A

PATIENT
  Age: 52 Year
  Sex: Male

DRUGS (2)
  1. AVANDIA [Suspect]
     Dosage: 4MG PER DAY
     Route: 048
  2. METFORMIN HCL [Concomitant]
     Route: 065

REACTIONS (3)
  - DIPLOPIA [None]
  - FALL [None]
  - TRANSIENT ISCHAEMIC ATTACK [None]
